FAERS Safety Report 4557797-X (Version None)
Quarter: 2005Q1

REPORT INFORMATION
  Report Type: 
  Country: None (occurrence: None)
  Receive Date: 20050121
  Receipt Date: 20050111
  Transmission Date: 20050727
  Serious: Yes (Hospitalization, Other)
  Sender: FDA-Public Use
  Company Number: US-JNJFOC-20031002780

PATIENT
  Sex: Male
  Weight: 86.18 kg

DRUGS (11)
  1. REMICADE [Suspect]
     Indication: CROHN'S DISEASE
     Route: 042
  2. CELEBREX [Suspect]
     Indication: DRUG USE FOR UNKNOWN INDICATION
  3. AZATHIOPRINE [Suspect]
     Indication: DRUG USE FOR UNKNOWN INDICATION
  4. NEXIUM [Concomitant]
  5. FOLIC ACID [Concomitant]
  6. QUESTRAN [Concomitant]
  7. HYDROCHLOROTHIAZIDE [Concomitant]
  8. ZOCOR [Concomitant]
  9. TYLENOL [Concomitant]
  10. IMODIUM [Concomitant]
  11. PREDNISONE [Concomitant]
     Indication: DRUG USE FOR UNKNOWN INDICATION

REACTIONS (27)
  - ADRENAL INSUFFICIENCY [None]
  - ALPHA HAEMOLYTIC STREPTOCOCCAL INFECTION [None]
  - ANAEMIA [None]
  - CHEST WALL MASS [None]
  - CROHN'S DISEASE [None]
  - DISSEMINATED TUBERCULOSIS [None]
  - DYSPNOEA [None]
  - ERYTHEMA NODOSUM [None]
  - FATIGUE [None]
  - GASTROOESOPHAGEAL REFLUX DISEASE [None]
  - GRANULOMA [None]
  - HAEMATOMA [None]
  - HAEMORRHOIDS [None]
  - HEPATIC STEATOSIS [None]
  - HYPERTENSION [None]
  - INTESTINAL ULCER [None]
  - NAUSEA [None]
  - OESOPHAGEAL ULCER [None]
  - OSTEOMYELITIS [None]
  - PANCREATITIS [None]
  - POLYP [None]
  - PYELONEPHRITIS [None]
  - RENAL FAILURE [None]
  - SEROMA [None]
  - SPONDYLOARTHROPATHY [None]
  - STITCH ABSCESS [None]
  - STREPTOCOCCAL SEPSIS [None]
